FAERS Safety Report 18050980 (Version 3)
Quarter: 2020Q3

REPORT INFORMATION
  Report Type: Report from Study
  Country: US (occurrence: US)
  Receive Date: 20200721
  Receipt Date: 20200820
  Transmission Date: 20201103
  Serious: Yes (Death, Hospitalization, Other)
  Sender: FDA-Public Use
  Company Number: US-GILEAD-2020-0484178

PATIENT
  Age: 15 Year
  Sex: Female
  Weight: 43.7 kg

DRUGS (62)
  1. VECURONIUM [Concomitant]
     Active Substance: VECURONIUM BROMIDE
  2. OXYGEN. [Concomitant]
     Active Substance: OXYGEN
  3. CEFEPIME [Concomitant]
     Active Substance: CEFEPIME HYDROCHLORIDE
     Dosage: UNK
     Dates: start: 20200712, end: 20200713
  4. DIPHENHYDRAMINE. [Concomitant]
     Active Substance: DIPHENHYDRAMINE
     Dosage: 12.5 MG
     Route: 042
     Dates: start: 20200717, end: 20200724
  5. FUROSEMIDE. [Concomitant]
     Active Substance: FUROSEMIDE
     Dosage: 10 MG/ML
     Route: 042
     Dates: start: 20200711, end: 20200722
  6. PARENTERAL [Concomitant]
     Dosage: 22 ML
     Route: 042
     Dates: start: 20200714, end: 20200716
  7. PARENTERAL [Concomitant]
     Dosage: 72.4 ML
     Route: 042
     Dates: start: 20200716, end: 20200717
  8. MAGNESIUM CITRATE. [Concomitant]
     Active Substance: MAGNESIUM CITRATE
     Dosage: 148 ML
     Route: 048
     Dates: start: 20200716, end: 20200716
  9. ACETAZOLAMIDE. [Concomitant]
     Active Substance: ACETAZOLAMIDE
     Dosage: 250 MG
     Route: 048
     Dates: start: 20200715, end: 20200716
  10. ZINC SULFATE. [Concomitant]
     Active Substance: ZINC SULFATE
     Dosage: 220 MG
     Route: 048
     Dates: start: 20200722, end: 20200725
  11. DEXMEDETOMIDINE. [Concomitant]
     Active Substance: DEXMEDETOMIDINE
     Dosage: UNK
     Route: 042
     Dates: start: 20200714, end: 20200725
  12. ALBUMIN HUMAN [Concomitant]
     Active Substance: ALBUMIN HUMAN
     Dosage: 12.5 UNK
     Route: 042
     Dates: start: 20200713, end: 20200714
  13. ACETAMINOPHEN. [Concomitant]
     Active Substance: ACETAMINOPHEN
     Indication: PAIN
     Dosage: 650 MG
     Route: 048
     Dates: start: 20200712, end: 20200725
  14. BISACODYL. [Concomitant]
     Active Substance: BISACODYL
     Indication: CONSTIPATION
     Dosage: 10 MG
     Route: 054
     Dates: start: 20200713, end: 20200723
  15. PHENOBARBITAL. [Concomitant]
     Active Substance: PHENOBARBITAL
     Dosage: 130 MG
     Route: 048
     Dates: start: 20200717, end: 20200725
  16. PARENTERAL [Concomitant]
     Dosage: 77.9 UNK
     Route: 042
     Dates: start: 20200717, end: 20200717
  17. INTRALIPID [Concomitant]
     Active Substance: EGG PHOSPHOLIPIDS\GLYCERIN\SOYBEAN OIL
     Dosage: 1000 ML
     Route: 042
     Dates: start: 20200717, end: 20200718
  18. INTRALIPID [Concomitant]
     Active Substance: EGG PHOSPHOLIPIDS\GLYCERIN\SOYBEAN OIL
     Dosage: 500 ML
     Route: 042
     Dates: start: 20200718, end: 20200719
  19. ANAKINRA [Concomitant]
     Active Substance: ANAKINRA
     Dosage: 100 MG
     Route: 058
     Dates: start: 20200715, end: 20200719
  20. LANSOPRAZOLE. [Concomitant]
     Active Substance: LANSOPRAZOLE
     Dosage: 30 MG
     Route: 048
     Dates: start: 20200719, end: 20200725
  21. SODIUM POLYSTYRENE SULFONATE. [Concomitant]
     Active Substance: SODIUM POLYSTYRENE SULFONATE
     Dosage: 15 G
     Route: 048
     Dates: start: 20200723, end: 20200724
  22. REMDESIVIR. [Suspect]
     Active Substance: REMDESIVIR
     Dosage: 100 MG, QD
     Route: 042
     Dates: start: 20200712, end: 20200715
  23. PLASMA [Concomitant]
     Active Substance: HUMAN PLASMA
  24. DEXMEDETOMIDINE. [Concomitant]
     Active Substance: DEXMEDETOMIDINE
     Indication: PAIN
     Dosage: UNK
     Route: 042
     Dates: start: 20200711, end: 20200714
  25. THROMBIN [Concomitant]
     Active Substance: THROMBIN
     Dosage: UNK
     Route: 061
     Dates: start: 20200712, end: 20200712
  26. ENOXAPARIN [Concomitant]
     Active Substance: ENOXAPARIN
     Dosage: 20 MG
     Route: 058
     Dates: start: 20200714, end: 20200725
  27. POLYETHYLENE GLYCOL [MACROGOL] [Concomitant]
     Active Substance: POLYETHYLENE GLYCOLS
     Dosage: 17 G
     Dates: start: 20200714, end: 20200724
  28. DOCUSATE SODIUM. [Concomitant]
     Active Substance: DOCUSATE SODIUM
     Indication: CONSTIPATION
     Dosage: 100 MG
     Route: 048
     Dates: start: 20200714, end: 20200722
  29. AUGMENTIN [Concomitant]
     Active Substance: AMOXICILLIN\CLAVULANATE POTASSIUM
  30. PHENOBARBITAL. [Concomitant]
     Active Substance: PHENOBARBITAL
     Dosage: 120 MG
     Route: 048
     Dates: start: 20200714, end: 20200717
  31. CASPOFUNGIN [Concomitant]
     Active Substance: CASPOFUNGIN
     Dosage: 70 MG
     Route: 042
     Dates: start: 20200718, end: 20200718
  32. REMDESIVIR. [Suspect]
     Active Substance: REMDESIVIR
     Indication: COVID-19
     Dosage: 200 MG, ONCE
     Route: 042
     Dates: start: 20200711, end: 20200711
  33. VANCOMYCIN [Concomitant]
     Active Substance: VANCOMYCIN
     Dosage: 800 MG
     Route: 042
     Dates: start: 20200717, end: 20200717
  34. ALBUTEROL [SALBUTAMOL] [Concomitant]
     Active Substance: ALBUTEROL
     Dosage: 200 MG
     Route: 042
     Dates: start: 20200718, end: 20200718
  35. BACITRACIN. [Concomitant]
     Active Substance: BACITRACIN
     Dosage: UNK
     Route: 061
     Dates: start: 20200714, end: 20200725
  36. HYDROCORTISONE SODIUM SUCCINATE [Concomitant]
     Active Substance: HYDROCORTISONE SODIUM SUCCINATE
     Dosage: 13.5 MG
     Route: 042
     Dates: start: 20200713, end: 20200724
  37. INTRALIPID [Concomitant]
     Active Substance: EGG PHOSPHOLIPIDS\GLYCERIN\SOYBEAN OIL
     Dosage: 500 ML
     Route: 042
     Dates: start: 20200714, end: 20200715
  38. MEROPENEM. [Concomitant]
     Active Substance: MEROPENEM
     Dosage: 880 MG
     Route: 042
     Dates: start: 20200721, end: 20200725
  39. SODIUM CHLORIDE. [Concomitant]
     Active Substance: SODIUM CHLORIDE
     Dosage: 0.9 %
     Route: 042
     Dates: start: 20200722, end: 20200725
  40. DEXAMETHASONE. [Concomitant]
     Active Substance: DEXAMETHASONE
  41. MIDAZOLAM. [Concomitant]
     Active Substance: MIDAZOLAM
  42. TPN [AMINO ACIDS NOS;CARBOHYDRATES NOS;MINERALS NOS;VITAMINS NOS] [Concomitant]
     Active Substance: AMINO ACIDS\CARBOHYDRATES\MINERALS\VITAMINS
  43. NITRIC OXIDE. [Concomitant]
     Active Substance: NITRIC OXIDE
  44. VANCOMYCIN [Concomitant]
     Active Substance: VANCOMYCIN
     Dosage: 800 MG
     Route: 042
     Dates: start: 20200716
  45. CEFEPIME [Concomitant]
     Active Substance: CEFEPIME HYDROCHLORIDE
     Dosage: UNK
     Route: 042
     Dates: start: 20200711, end: 20200712
  46. CEFEPIME [Concomitant]
     Active Substance: CEFEPIME HYDROCHLORIDE
     Dosage: 20 MG/ML
     Route: 042
     Dates: start: 20200713, end: 20200719
  47. CISATRACURIUM. [Concomitant]
     Active Substance: CISATRACURIUM
     Dosage: 4.4 MG
     Route: 042
     Dates: start: 20200716, end: 20200716
  48. CISATRACURIUM. [Concomitant]
     Active Substance: CISATRACURIUM
     Dosage: 4.37 UNK
     Route: 042
     Dates: start: 20200714, end: 20200726
  49. LEVOCARNITINE. [Concomitant]
     Active Substance: LEVOCARNITINE
     Dosage: 1000 MG
     Route: 048
     Dates: start: 20200716, end: 20200725
  50. CHLOROTHIAZIDE. [Concomitant]
     Active Substance: CHLOROTHIAZIDE
     Dosage: UNK
     Route: 042
     Dates: start: 20200715, end: 20200715
  51. ACICLOVIR [Concomitant]
     Active Substance: ACYCLOVIR
     Indication: HERPES SIMPLEX
     Dosage: 400 MG
     Route: 048
     Dates: start: 20200714, end: 20200721
  52. VITAMIN C [Concomitant]
     Active Substance: ASCORBIC ACID
     Dosage: 500 MG
     Route: 048
     Dates: start: 20200722, end: 20200725
  53. FENTANYL. [Concomitant]
     Active Substance: FENTANYL
  54. ALBUMIN HUMAN [Concomitant]
     Active Substance: ALBUMIN HUMAN
     Dosage: 12.5 G
     Route: 042
     Dates: start: 20200712, end: 20200713
  55. SODIUM PHOSPHATE [Concomitant]
     Active Substance: SODIUM PHOSPHATE
     Indication: CONSTIPATION
     Dosage: UNK
     Route: 054
     Dates: start: 20200714, end: 20200714
  56. LOVENOX [Concomitant]
     Active Substance: ENOXAPARIN SODIUM
  57. EPINEPHRINE. [Concomitant]
     Active Substance: EPINEPHRINE
     Dosage: 0.09
     Route: 042
     Dates: start: 20200716, end: 20200721
  58. VANCOMYCIN [Concomitant]
     Active Substance: VANCOMYCIN
     Dosage: 650 UNK
     Route: 042
     Dates: start: 20200719, end: 20200722
  59. DIPHENHYDRAMINE. [Concomitant]
     Active Substance: DIPHENHYDRAMINE
     Indication: PRURITUS
     Dosage: 12.5 MG
     Route: 042
     Dates: start: 20200721, end: 20200721
  60. CISATRACURIUM. [Concomitant]
     Active Substance: CISATRACURIUM
     Dosage: 0.4 MG/ML
     Route: 042
     Dates: start: 20200713, end: 20200716
  61. PARENTERAL [Concomitant]
     Dosage: 53.2 UNK
     Route: 042
     Dates: start: 20200718, end: 20200719
  62. CASPOFUNGIN [Concomitant]
     Active Substance: CASPOFUNGIN
     Dosage: 50 UNK
     Route: 042
     Dates: start: 20200719, end: 20200725

REACTIONS (5)
  - Haematuria [Recovered/Resolved]
  - COVID-19 [Fatal]
  - Respiratory failure [Fatal]
  - Acute respiratory distress syndrome [Fatal]
  - Proteinuria [Recovered/Resolved]

NARRATIVE: CASE EVENT DATE: 20200712
